FAERS Safety Report 16132880 (Version 4)
Quarter: 2019Q2

REPORT INFORMATION
  Report Type: Spontaneous
  Country: US (occurrence: US)
  Receive Date: 20190329
  Receipt Date: 20190606
  Transmission Date: 20190711
  Serious: No
  Sender: FDA-Public Use
  Company Number: US-SA-2019SA084735

PATIENT
  Age: 100 Year
  Sex: Female

DRUGS (1)
  1. LOVENOX [Suspect]
     Active Substance: ENOXAPARIN SODIUM
     Indication: COAGULOPATHY
     Dosage: 40 MG, QD
     Route: 065
     Dates: start: 20190213

REACTIONS (3)
  - Injection site erythema [Unknown]
  - Needle issue [Unknown]
  - Injection site bruising [Unknown]
